FAERS Safety Report 25735914 (Version 2)
Quarter: 2025Q4

REPORT INFORMATION
  Report Type: Spontaneous
  Country: CA (occurrence: CA)
  Receive Date: 20250828
  Receipt Date: 20251009
  Transmission Date: 20260118
  Serious: Yes (Death, Hospitalization, Disabling, Congenital Anomaly)
  Sender: ROCHE
  Company Number: CA-ROCHE-10000368858

PATIENT
  Age: 43 Year
  Sex: Female
  Weight: 96 kg

DRUGS (18)
  1. ACTEMRA [Suspect]
     Active Substance: TOCILIZUMAB
     Indication: Rheumatoid arthritis
     Route: 042
  2. ACTEMRA [Suspect]
     Active Substance: TOCILIZUMAB
     Route: 058
  3. ACTEMRA [Suspect]
     Active Substance: TOCILIZUMAB
     Route: 065
  4. ACTEMRA [Suspect]
     Active Substance: TOCILIZUMAB
     Route: 058
  5. ACTEMRA [Suspect]
     Active Substance: TOCILIZUMAB
     Route: 058
  6. ACTEMRA [Suspect]
     Active Substance: TOCILIZUMAB
     Route: 042
  7. ACTEMRA [Suspect]
     Active Substance: TOCILIZUMAB
     Route: 065
  8. ACTEMRA [Suspect]
     Active Substance: TOCILIZUMAB
     Route: 058
  9. ACTEMRA [Suspect]
     Active Substance: TOCILIZUMAB
     Route: 058
  10. RITUXIMAB [Suspect]
     Active Substance: RITUXIMAB
     Indication: Rheumatoid arthritis
     Route: 065
  11. RITUXIMAB [Suspect]
     Active Substance: RITUXIMAB
     Route: 042
  12. GLUCOSAMINE [Concomitant]
     Active Substance: GLUCOSAMINE
  13. IBUPROFEN [Concomitant]
     Active Substance: IBUPROFEN
  14. LANSOPRAZOLE [Concomitant]
     Active Substance: LANSOPRAZOLE
  15. ATIVAN [Concomitant]
     Active Substance: LORAZEPAM
  16. CYANOCOBALAMIN [Concomitant]
     Active Substance: CYANOCOBALAMIN
  17. DOCONEXENT [Concomitant]
     Active Substance: DOCONEXENT
  18. ICOSAPENT [Concomitant]
     Active Substance: ICOSAPENT

REACTIONS (40)
  - Alopecia [Fatal]
  - Arthropathy [Fatal]
  - Asthenia [Fatal]
  - Breast cancer stage III [Fatal]
  - Bursitis [Fatal]
  - C-reactive protein [Fatal]
  - Condition aggravated [Fatal]
  - Confusional state [Fatal]
  - Duodenal ulcer perforation [Fatal]
  - Epilepsy [Fatal]
  - Facet joint syndrome [Fatal]
  - Fatigue [Fatal]
  - Fibromyalgia [Fatal]
  - Hand deformity [Fatal]
  - Helicobacter infection [Fatal]
  - Hypoaesthesia [Fatal]
  - Inflammation [Fatal]
  - Lip dry [Fatal]
  - Liver injury [Fatal]
  - Lower respiratory tract infection [Fatal]
  - Maternal exposure during pregnancy [Fatal]
  - Mobility decreased [Fatal]
  - Muscle injury [Fatal]
  - Musculoskeletal pain [Fatal]
  - Nail disorder [Fatal]
  - Nasopharyngitis [Fatal]
  - Obesity [Fatal]
  - Osteoarthritis [Fatal]
  - Pemphigus [Fatal]
  - Pericarditis [Fatal]
  - Psoriatic arthropathy [Fatal]
  - Rheumatoid arthritis [Fatal]
  - Stomatitis [Fatal]
  - Swelling [Fatal]
  - Systemic lupus erythematosus [Fatal]
  - Type 2 diabetes mellitus [Fatal]
  - Urticaria [Fatal]
  - Wheezing [Fatal]
  - Wound infection [Fatal]
  - Hypertension [Fatal]
